FAERS Safety Report 10166664 (Version 2)
Quarter: 2014Q2

REPORT INFORMATION
  Report Type: Spontaneous
  Country: HR (occurrence: HR)
  Receive Date: 20140512
  Receipt Date: 20140626
  Transmission Date: 20141212
  Serious: Yes (Other)
  Sender: FDA-Public Use
  Company Number: HR-MERCK-1405HRV004738

PATIENT
  Age: 27 Year
  Sex: Female
  Weight: 90 kg

DRUGS (4)
  1. ESMERON [Suspect]
     Indication: INDUCTION OF ANAESTHESIA
     Dosage: 50 MG, ONCE
     Route: 042
     Dates: start: 20140507, end: 20140507
  2. FENTANYL [Concomitant]
     Dosage: 50 MCG/ML; 100 MCG
     Route: 042
     Dates: start: 20140507
  3. PROPOFOL [Concomitant]
     Dosage: 10MG/ML; 180MG
     Route: 042
     Dates: start: 20140507
  4. DORMICUM (MIDAZOLAM HYDROCHLORIDE) [Concomitant]
     Dosage: 5MG/ML
     Route: 042
     Dates: start: 20140507

REACTIONS (4)
  - Generalised erythema [Recovered/Resolved]
  - Hypotension [Recovered/Resolved]
  - Urticaria [Recovered/Resolved]
  - Tachycardia [Recovered/Resolved]
